FAERS Safety Report 4952145-5 (Version None)
Quarter: 2006Q1

REPORT INFORMATION
  Report Type: 
  Country: None (occurrence: None)
  Receive Date: 20060320
  Receipt Date: 20060313
  Transmission Date: 20060701
  Serious: Yes (Other)
  Sender: FDA-Public Use
  Company Number: 2006-03-0030

PATIENT
  Age: 46 Year
  Sex: Male

DRUGS (6)
  1. PEG-INTRON [Suspect]
     Indication: HEPATITIS C
     Dosage: 1 UG/KG QW* SUBCUTANEOUS
     Route: 058
     Dates: start: 20020215, end: 20020504
  2. PEG-INTRON [Suspect]
     Indication: HEPATITIS C
     Dosage: 1 UG/KG QW* SUBCUTANEOUS
     Route: 058
     Dates: start: 20020215, end: 20021025
  3. PEG-INTRON [Suspect]
     Indication: HEPATITIS C
     Dosage: 1 UG/KG QW* SUBCUTANEOUS
     Route: 058
     Dates: start: 20020729, end: 20021025
  4. REBETOL [Suspect]
     Indication: HEPATITIS C
     Dosage: 200-400 QD* ORAL
     Route: 048
     Dates: start: 20020215, end: 20020429
  5. REBETOL [Suspect]
     Indication: HEPATITIS C
     Dosage: 200-400 QD* ORAL
     Route: 048
     Dates: start: 20020729, end: 20021025
  6. REBETOL [Suspect]
     Indication: HEPATITIS C
     Dosage: 200-400 QD* ORAL
     Route: 048
     Dates: start: 20051012

REACTIONS (6)
  - ANAEMIA [None]
  - COMPLICATIONS OF TRANSPLANTED LIVER [None]
  - DRUG INEFFECTIVE [None]
  - HEPATIC ARTERY THROMBOSIS [None]
  - LEUKOPENIA [None]
  - LIVER TRANSPLANT [None]
